FAERS Safety Report 19765374 (Version 1)
Quarter: 2021Q3

REPORT INFORMATION
  Report Type: Spontaneous
  Country: US (occurrence: US)
  Receive Date: 20210831
  Receipt Date: 20210831
  Transmission Date: 20211014
  Serious: No
  Sender: FDA-Public Use
  Company Number: US-B.I. PHARMACEUTICALS,INC./RIDGEFIELD-2021-BI-123263

PATIENT
  Age: 77 Year
  Sex: Female

DRUGS (2)
  1. OFEV [Suspect]
     Active Substance: NINTEDANIB
     Indication: IDIOPATHIC PULMONARY FIBROSIS
     Route: 048
     Dates: start: 20210628
  2. OFEV [Suspect]
     Active Substance: NINTEDANIB
     Dosage: 150MG TWICE DAILY
     Route: 048
     Dates: start: 20210702

REACTIONS (5)
  - Vomiting [Recovered/Resolved]
  - Abdominal discomfort [Recovering/Resolving]
  - Nausea [Recovered/Resolved]
  - Diarrhoea [Not Recovered/Not Resolved]
  - Blood sodium decreased [Recovered/Resolved]

NARRATIVE: CASE EVENT DATE: 202107
